FAERS Safety Report 10215558 (Version 1)
Quarter: 2014Q2

REPORT INFORMATION
  Report Type: Spontaneous
  Country: JP (occurrence: JP)
  Receive Date: 20140604
  Receipt Date: 20140604
  Transmission Date: 20141212
  Serious: Yes (Other)
  Sender: FDA-Public Use
  Company Number: JP-ACCORD-024034

PATIENT
  Age: 60 Year
  Sex: Female

DRUGS (2)
  1. TACROLIMUS [Suspect]
     Indication: GRAFT VERSUS HOST DISEASE
  2. METHYLPREDNISOLONE [Suspect]
     Indication: GRAFT VERSUS HOST DISEASE

REACTIONS (1)
  - Cerebral toxoplasmosis [Recovering/Resolving]
